FAERS Safety Report 7261834-1 (Version None)
Quarter: 2011Q1

REPORT INFORMATION
  Report Type: 
  Country: None (occurrence: None)
  Receive Date: 20110130
  Receipt Date: 20101208
  Transmission Date: 20110831
  Serious: No
  Sender: FDA-Public Use
  Company Number: US-ABBOTT-10P-163-0690792-00

PATIENT
  Sex: Female
  Weight: 61.744 kg

DRUGS (9)
  1. AMITRIPTYLINE HCL [Concomitant]
     Indication: PAIN
  2. HUMIRA [Suspect]
     Indication: RHEUMATOID ARTHRITIS
     Dates: start: 20100201
  3. OMEPRAZOLE [Concomitant]
     Indication: PROPHYLAXIS AGAINST GASTROINTESTINAL ULCER
  4. HUMIRA [Suspect]
     Dates: start: 20100801
  5. VITAMINS WITH IRON [Concomitant]
     Indication: IRON DEFICIENCY ANAEMIA
  6. PLAQUENIL [Concomitant]
     Indication: RHEUMATOID ARTHRITIS
  7. IBUPROFEN [Concomitant]
     Indication: RHEUMATOID ARTHRITIS
  8. PREDNISONE [Concomitant]
     Indication: RHEUMATOID ARTHRITIS
  9. HUMIRA [Suspect]
     Dates: start: 20100101, end: 20100801

REACTIONS (4)
  - NASAL CONGESTION [None]
  - TOOTH ABSCESS [None]
  - COUGH [None]
  - UPPER RESPIRATORY TRACT INFECTION [None]
